FAERS Safety Report 23074482 (Version 1)
Quarter: 2023Q4

REPORT INFORMATION
  Report Type: Other
  Country: None (occurrence: TR)
  Receive Date: 20231017
  Receipt Date: 20231017
  Transmission Date: 20240110
  Serious: Yes (Other)
  Sender: FDA-Public Use
  Company Number: TR-Spectra Medical Devices, LLC-2147182

PATIENT
  Age: 55 Year
  Sex: Male

DRUGS (2)
  1. LIDOCAINE HYDROCHLORIDE [Suspect]
     Active Substance: LIDOCAINE HYDROCHLORIDE
     Indication: Anaesthesia
     Route: 056
  2. BUPIVACAINE [Suspect]
     Active Substance: BUPIVACAINE
     Route: 065

REACTIONS (3)
  - Deafness bilateral [Recovered/Resolved]
  - Respiratory distress [Recovered/Resolved]
  - Confusional state [Recovered/Resolved]
